FAERS Safety Report 15792175 (Version 1)
Quarter: 2019Q1

REPORT INFORMATION
  Report Type: Spontaneous
  Country: US (occurrence: US)
  Receive Date: 20190106
  Receipt Date: 20190106
  Transmission Date: 20190417
  Serious: Yes (Other)
  Sender: FDA-Public Use
  Company Number: US-BRISTOL-MYERS SQUIBB COMPANY-BMS-2019-000140

PATIENT
  Sex: Female
  Weight: 54.4 kg

DRUGS (1)
  1. COUMADIN [Suspect]
     Active Substance: WARFARIN SODIUM
     Indication: ATRIAL FIBRILLATION
     Dosage: 1.5 TABLETS A DAY OF A 5MG TABLET
     Route: 048

REACTIONS (2)
  - Haemorrhage [Unknown]
  - Contusion [Unknown]
